FAERS Safety Report 19674649 (Version 3)
Quarter: 2021Q3

REPORT INFORMATION
  Report Type: Spontaneous
  Country: US (occurrence: US)
  Receive Date: 20210809
  Receipt Date: 20210914
  Transmission Date: 20211014
  Serious: Yes (Other)
  Sender: FDA-Public Use
  Company Number: US-CIPLA LTD.-2021US05298

PATIENT

DRUGS (9)
  1. ATAZANAVIR. [Suspect]
     Active Substance: ATAZANAVIR
     Dosage: UNK
     Route: 064
  2. RITONAVIR. [Suspect]
     Active Substance: RITONAVIR
     Dosage: UNK
     Route: 064
  3. RITONAVIR. [Suspect]
     Active Substance: RITONAVIR
     Dosage: UNK
     Route: 064
  4. ATAZANAVIR. [Suspect]
     Active Substance: ATAZANAVIR
     Dosage: UNK
     Route: 064
  5. TRIUMEQ [Suspect]
     Active Substance: ABACAVIR SULFATE\DOLUTEGRAVIR SODIUM\LAMIVUDINE
     Dosage: UNK
     Route: 064
  6. EVOTAZ [Suspect]
     Active Substance: ATAZANAVIR SULFATE\COBICISTAT
     Dosage: UNK
     Route: 064
  7. BIKTARVY [Suspect]
     Active Substance: BICTEGRAVIR SODIUM\EMTRICITABINE\TENOFOVIR ALAFENAMIDE FUMARATE
     Dosage: UNK
     Route: 064
  8. RITONAVIR. [Suspect]
     Active Substance: RITONAVIR
     Dosage: UNK
     Route: 064
  9. ATAZANAVIR. [Suspect]
     Active Substance: ATAZANAVIR
     Dosage: UNK
     Route: 064

REACTIONS (4)
  - Premature baby [Unknown]
  - Hyperbilirubinaemia [Unknown]
  - Low birth weight baby [Unknown]
  - Foetal exposure during pregnancy [Unknown]

NARRATIVE: CASE EVENT DATE: 20201126
